FAERS Safety Report 21907074 (Version 1)
Quarter: 2023Q1

REPORT INFORMATION
  Report Type: Spontaneous
  Country: US (occurrence: US)
  Receive Date: 20230125
  Receipt Date: 20230125
  Transmission Date: 20230417
  Serious: No
  Sender: FDA-Public Use
  Company Number: US-HORIZON THERAPEUTICS-HZN-2023-000185

PATIENT

DRUGS (1)
  1. PENNSAID [Suspect]
     Active Substance: DICLOFENAC SODIUM
     Indication: Product used for unknown indication
     Dosage: USE 2 PUMPS PER KNEE
     Route: 065

REACTIONS (4)
  - Product deposit [Unknown]
  - Rash [Unknown]
  - Application site pain [Unknown]
  - Treatment noncompliance [Unknown]
